FAERS Safety Report 11728588 (Version 2)
Quarter: 2015Q4

REPORT INFORMATION
  Report Type: Spontaneous
  Country: US (occurrence: US)
  Receive Date: 20151112
  Receipt Date: 20151216
  Transmission Date: 20160304
  Serious: No
  Sender: FDA-Public Use
  Company Number: US-BAYER-2015-464933

PATIENT
  Age: 60 Year
  Sex: Female
  Weight: 50.79 kg

DRUGS (1)
  1. MIRALAX [Suspect]
     Active Substance: POLYETHYLENE GLYCOL 3350
     Indication: DIVERTICULUM
     Dosage: 1 DF, PRN
     Route: 048

REACTIONS (2)
  - Diarrhoea [None]
  - Off label use [None]

NARRATIVE: CASE EVENT DATE: 20151104
